FAERS Safety Report 13835166 (Version 1)
Quarter: 2017Q3

REPORT INFORMATION
  Report Type: Spontaneous
  Country: US (occurrence: US)
  Receive Date: 20170804
  Receipt Date: 20170804
  Transmission Date: 20171127
  Serious: No
  Sender: FDA-Public Use
  Company Number: US-PFIZER INC-2017092125

PATIENT
  Age: 9 Year
  Sex: Male
  Weight: 22 kg

DRUGS (3)
  1. GENOTROPIN [Suspect]
     Active Substance: SOMATROPIN
     Indication: GROWTH HORMONE DEFICIENCY
     Dosage: UNK, DAILY
  2. GENOTROPIN [Suspect]
     Active Substance: SOMATROPIN
     Indication: BODY HEIGHT BELOW NORMAL
     Dosage: UNK, DAILY
     Dates: start: 20131023
  3. GENOTROPIN [Suspect]
     Active Substance: SOMATROPIN
     Dosage: 12 ML, UNK

REACTIONS (4)
  - Incorrect dose administered [Recovered/Resolved]
  - Drug dose omission [Unknown]
  - Wrong technique in product usage process [Unknown]
  - Headache [Recovered/Resolved]

NARRATIVE: CASE EVENT DATE: 20170228
